FAERS Safety Report 8896337 (Version 1)
Quarter: 2012Q4

REPORT INFORMATION
  Report Type: Spontaneous
  Country: US (occurrence: None)
  Receive Date: 20121107
  Receipt Date: 20121107
  Transmission Date: 20130627
  Serious: Yes (Other)
  Sender: FDA-Public Use
  Company Number: None

PATIENT
  Sex: Male
  Weight: 83.92 kg

DRUGS (1)
  1. TARCEVA [Suspect]
     Indication: LUNG CANCER
     Dosage: Sept 1 to Sept 20
     Route: 048

REACTIONS (4)
  - Rash [None]
  - Asthenia [None]
  - Hypotonia [None]
  - Weight decreased [None]
